FAERS Safety Report 16326685 (Version 2)
Quarter: 2019Q2

REPORT INFORMATION
  Report Type: Report from Study
  Country: AR (occurrence: AR)
  Receive Date: 20190517
  Receipt Date: 20190524
  Transmission Date: 20190711
  Serious: Yes (Death, Other)
  Sender: FDA-Public Use
  Company Number: PHHY2019AR113351

PATIENT
  Sex: Female

DRUGS (1)
  1. AFINITOR [Suspect]
     Active Substance: EVEROLIMUS
     Indication: BREAST CANCER
     Dosage: 10 MG, DAILY
     Route: 065
     Dates: start: 20170825

REACTIONS (7)
  - Infarction [Fatal]
  - Cardiac failure [Unknown]
  - Hypertension [Unknown]
  - Diabetes mellitus inadequate control [Unknown]
  - Metastases to chest wall [Unknown]
  - Metastases to stomach [Unknown]
  - Metastases to skin [Unknown]
